FAERS Safety Report 14066241 (Version 3)
Quarter: 2017Q4

REPORT INFORMATION
  Report Type: Report from Study
  Country: MX (occurrence: MX)
  Receive Date: 20171010
  Receipt Date: 20171128
  Transmission Date: 20180321
  Serious: Yes (Other)
  Sender: FDA-Public Use
  Company Number: PHHY2017MX129896

PATIENT
  Age: 70 Year
  Sex: Female

DRUGS (3)
  1. STALEVO [Suspect]
     Active Substance: CARBIDOPA\ENTACAPONE\LEVODOPA
     Indication: PARKINSON^S DISEASE
     Dosage: 3 DF (12.5MG CARBIDOPA/200 MG ENTACAPONE/50MG LEVODOPA), QD
     Route: 065
  2. STALEVO [Suspect]
     Active Substance: CARBIDOPA\ENTACAPONE\LEVODOPA
     Indication: EPILEPSY
     Dosage: 2 DF (12.5MG CARBIDOPA/200 MG ENTACAPONE/50MG LEVODOPA), QD
     Route: 048
     Dates: start: 2008
  3. LEVOTHYROXINE SODIUM. [Concomitant]
     Active Substance: LEVOTHYROXINE SODIUM
     Indication: HYPOTHYROIDISM
     Dosage: 1.5 MG, QD (12YEARS AGO)
     Route: 048

REACTIONS (7)
  - Mobility decreased [Unknown]
  - Lymphoedema [Not Recovered/Not Resolved]
  - Localised infection [Not Recovered/Not Resolved]
  - Limb discomfort [Not Recovered/Not Resolved]
  - Inflammation [Not Recovered/Not Resolved]
  - Ear pain [Not Recovered/Not Resolved]
  - Tooth disorder [Not Recovered/Not Resolved]

NARRATIVE: CASE EVENT DATE: 2008
